FAERS Safety Report 4658659-X (Version None)
Quarter: 2005Q2

REPORT INFORMATION
  Report Type: 
  Country: None (occurrence: None)
  Receive Date: 20050510
  Receipt Date: 20050510
  Transmission Date: 20051028
  Serious: Yes (Hospitalization)
  Sender: FDA-Public Use
  Company Number: None

PATIENT
  Age: 45 Year
  Sex: Female

DRUGS (11)
  1. MELOXICAM   7.5 MG [Suspect]
     Indication: PAIN
     Dosage: 7.5 MG   QD  ORAL
     Route: 048
  2. MELOXICAM   7.5 MG [Suspect]
     Indication: SYSTEMIC LUPUS ERYTHEMATOSUS
     Dosage: 7.5 MG   QD  ORAL
     Route: 048
  3. PREVACID [Concomitant]
  4. MAXIPIME [Concomitant]
  5. ASPIRIN [Concomitant]
  6. PLAQUENIL [Concomitant]
  7. FEOSOL [Concomitant]
  8. HEPARIN [Concomitant]
  9. ATARAX [Concomitant]
  10. SINGULAIR [Concomitant]
  11. KLOR-CON [Concomitant]

REACTIONS (2)
  - RASH GENERALISED [None]
  - RASH PRURITIC [None]
